FAERS Safety Report 8188406-9 (Version None)
Quarter: 2012Q1

REPORT INFORMATION
  Report Type: 
  Country: None (occurrence: None)
  Receive Date: 20120306
  Receipt Date: 20120227
  Transmission Date: 20120608
  Serious: Yes (Other)
  Sender: FDA-Public Use
  Company Number: PHEH2012US004822

PATIENT
  Age: 73 Year
  Sex: Female
  Weight: 49.887 kg

DRUGS (20)
  1. DOCUSATE SODIUM [Concomitant]
     Indication: CONSTIPATION
     Dosage: 100 MG, BID
     Route: 048
     Dates: start: 20110321, end: 20110805
  2. ZINC OXIDE [Concomitant]
     Dosage: UNK UKN, UNK
     Dates: start: 20111110
  3. CALCIUM GLUBIONATE [Concomitant]
     Indication: OSTEOPENIA
     Dosage: 20 ML, BID
     Route: 048
     Dates: start: 20101110, end: 20111006
  4. FANAPT [Suspect]
     Dosage: 6 MG, BID
     Dates: end: 20110725
  5. DOXYCLINE [Concomitant]
     Dosage: 20 MG, BID
     Route: 048
     Dates: start: 20110527, end: 20111201
  6. LEVOTHYROXINE SODIUM [Concomitant]
     Indication: HYPOTHYROIDISM
     Dosage: 125 UKN, QD
     Route: 048
     Dates: start: 20110527, end: 20110812
  7. POLYETHYLENE GLYCOL [Concomitant]
     Dosage: 17 G, QD
     Route: 048
     Dates: start: 20070508
  8. ACETAMINOPHEN [Concomitant]
     Indication: PAIN
     Dosage: 650 MG, UNK
     Route: 048
     Dates: start: 20101110
  9. CALCIFEROL [Concomitant]
     Dosage: 400 U, QD
     Route: 048
     Dates: start: 20101021, end: 20110811
  10. SIMVASTATIN [Concomitant]
     Indication: DYSLIPIDAEMIA
     Dosage: 20 MG, UNK
     Route: 048
     Dates: start: 20110813, end: 20110821
  11. FANAPT [Suspect]
     Dosage: 4 MG, BID
     Dates: end: 20110727
  12. IBANDRONATE SODIUM [Concomitant]
     Indication: OSTEOPOROSIS
     Dosage: 150 MG, UNK
     Route: 048
     Dates: start: 20110527, end: 20111201
  13. ANTACIDS [Concomitant]
     Dosage: 30 ML, PRN
     Route: 048
     Dates: start: 20080703
  14. FANAPT [Suspect]
     Indication: SCHIZOAFFECTIVE DISORDER BIPOLAR TYPE
     Dosage: 12 MG, BID
     Dates: start: 20110209, end: 20110721
  15. BEN GAY [Concomitant]
     Dosage: UNK
     Dates: start: 20070508
  16. BIOTENE [Concomitant]
     Dosage: 2 UNK, UNK
     Route: 048
     Dates: start: 20110406
  17. CLONAZEPAM [Concomitant]
     Dosage: 1 MG, UNK
     Route: 048
     Dates: start: 20090303, end: 20110725
  18. ILOPERIDONE [Concomitant]
     Dosage: 12 MG, BID
     Route: 048
     Dates: start: 20110527, end: 20110722
  19. LORATADINE [Concomitant]
     Indication: RHINITIS ALLERGIC
     Dosage: 10 MG, QD
     Route: 048
     Dates: start: 20110527, end: 20110818
  20. BISACODYL [Concomitant]
     Dosage: 10 MG, PRN
     Dates: start: 20080715

REACTIONS (11)
  - URINARY TRACT INFECTION [None]
  - LETHARGY [None]
  - MILD MENTAL RETARDATION [None]
  - MENOPAUSAL DISORDER [None]
  - MANIA [None]
  - COGNITIVE DISORDER [None]
  - AFFECTIVE DISORDER [None]
  - PARKINSON'S DISEASE [None]
  - MUSCLE RIGIDITY [None]
  - COMPLICATION OF DELIVERY [None]
  - MASTICATION DISORDER [None]
